FAERS Safety Report 7973994 (Version 3)
Quarter: 2013Q4

REPORT INFORMATION
  Report Type: Spontaneous
  Country: US (occurrence: US)
  Receive Date: 20110603
  Receipt Date: 20131223
  Transmission Date: 20140711
  Serious: Yes (Hospitalization)
  Sender: FDA-Public Use
  Company Number: US-BAYER-2011-047447

PATIENT
  Age: 23 Year
  Sex: Female
  Weight: 100 kg

DRUGS (8)
  1. YASMIN [Suspect]
     Indication: CONTRACEPTION
     Dosage: UNK
     Route: 048
     Dates: start: 200612, end: 200807
  2. OCELLA [Suspect]
     Indication: CONTRACEPTION
     Dosage: UNK
     Route: 048
     Dates: start: 200807, end: 200905
  3. EFFEXOR XR [Concomitant]
     Dosage: 150 UNK, UNK
  4. DOCUSATE SODIUM [Concomitant]
     Dosage: 250 MG, UNK
  5. MULTIPLE VITAMINS [Concomitant]
  6. EFFEXOR [Concomitant]
  7. DOXYCYCLINE [Concomitant]
     Dosage: 100 MG, UNK
     Dates: start: 20090318
  8. HYOSCYAMINE [Concomitant]
     Dosage: 0.125 MG, UNK
     Dates: start: 20090430

REACTIONS (3)
  - Cholecystitis chronic [None]
  - Cholelithiasis [Unknown]
  - Pain [None]
